FAERS Safety Report 10380358 (Version 1)
Quarter: 2014Q3

REPORT INFORMATION
  Report Type: Report from Study
  Country: US (occurrence: US)
  Receive Date: 20140813
  Receipt Date: 20140813
  Transmission Date: 20150326
  Serious: Yes (Other)
  Sender: FDA-Public Use
  Company Number: US-ROCHE-1447503

PATIENT
  Sex: Female
  Weight: 33 kg

DRUGS (3)
  1. STRATTERA [Concomitant]
     Active Substance: ATOMOXETINE HYDROCHLORIDE
     Route: 048
  2. BACTRIM SS [Concomitant]
     Indication: INFECTION
     Dosage: 400/80MG 1 TAB
     Route: 048
  3. NUTROPIN [Suspect]
     Active Substance: SOMATROPIN
     Indication: BODY HEIGHT BELOW NORMAL
     Route: 058
     Dates: start: 20140805

REACTIONS (7)
  - Visual impairment [Unknown]
  - Asthenia [Unknown]
  - Goitre [Unknown]
  - Arthritis infective [Unknown]
  - Constipation [Unknown]
  - Headache [Unknown]
  - Eye movement disorder [Unknown]
